FAERS Safety Report 15292948 (Version 1)
Quarter: 2018Q3

REPORT INFORMATION
  Report Type: Spontaneous
  Country: US (occurrence: US)
  Receive Date: 20180806
  Receipt Date: 20180806
  Transmission Date: 20181010
  Serious: No
  Sender: FDA-Public Use
  Company Number: None

PATIENT
  Age: 65 Year
  Sex: Female
  Weight: 54.9 kg

DRUGS (1)
  1. ALORA [Suspect]
     Active Substance: ESTRADIOL
     Route: 062

REACTIONS (1)
  - Tachycardia [None]
